FAERS Safety Report 7434233-7 (Version None)
Quarter: 2011Q2

REPORT INFORMATION
  Report Type: 
  Country: None (occurrence: None)
  Receive Date: 20110425
  Receipt Date: 20110421
  Transmission Date: 20111010
  Serious: No
  Sender: FDA-Public Use
  Company Number: US-PFIZER INC-2011087541

PATIENT
  Sex: Female

DRUGS (2)
  1. ADVIL LIQUI-GELS [Suspect]
     Indication: CARPAL TUNNEL SYNDROME
  2. ADVIL LIQUI-GELS [Suspect]
     Indication: PAIN
     Dosage: UNK
     Dates: start: 20110421

REACTIONS (1)
  - DRUG INEFFECTIVE [None]
